FAERS Safety Report 5190817-0 (Version None)
Quarter: 2006Q4

REPORT INFORMATION
  Report Type: 
  Country: None (occurrence: None)
  Receive Date: 20061215
  Receipt Date: 20061213
  Transmission Date: 20070319
  Serious: Yes (Life-Threatening, Disabling)
  Sender: FDA-Public Use
  Company Number: S06-FRA-04599-01

PATIENT
  Age: 19 Year
  Sex: Female

DRUGS (5)
  1. SEROPLEX             (ESCITALOPRAM) [Suspect]
     Indication: MAJOR DEPRESSION
     Dosage: 10 MG QD PO
     Dates: start: 20060901, end: 20061001
  2. SEROPLEX (ESCITALOPRAM) [Suspect]
     Indication: MAJOR DEPRESSION
     Dosage: 20 MG QD PO
     Route: 048
     Dates: start: 20051017, end: 20060901
  3. SEROPLEX (ESCITALOPRAM) [Suspect]
     Indication: MAJOR DEPRESSION
     Dosage: 20 MG QD PO
     Route: 048
     Dates: start: 20061001, end: 20060101
  4. SEROPLEX (ESCITALOPRAM) [Suspect]
     Indication: MAJOR DEPRESSION
     Dosage: 15 MG QD PO
     Route: 048
     Dates: start: 20060101
  5. TRILEPTAL [Concomitant]

REACTIONS (4)
  - AGITATION [None]
  - PARASOMNIA [None]
  - SKIN INJURY [None]
  - SLEEP WALKING [None]
